FAERS Safety Report 9762342 (Version 1)
Quarter: 2013Q4

REPORT INFORMATION
  Report Type: Spontaneous
  Country: US (occurrence: US)
  Receive Date: 20131216
  Receipt Date: 20131216
  Transmission Date: 20140711
  Serious: No
  Sender: FDA-Public Use
  Company Number: US-BIOGENIDEC-2013BI104637

PATIENT
  Sex: Female
  Weight: 54 kg

DRUGS (7)
  1. TECFIDERA [Suspect]
     Indication: MULTIPLE SCLEROSIS
     Route: 048
  2. TECFIDERA [Suspect]
     Indication: MULTIPLE SCLEROSIS
     Route: 048
  3. ZYRTEC [Concomitant]
  4. LEVOCETIRIZI [Concomitant]
  5. HYDROXYZ HCL [Concomitant]
  6. NUVARING [Concomitant]
  7. SINGULAIR [Concomitant]

REACTIONS (3)
  - Abdominal discomfort [Not Recovered/Not Resolved]
  - Flushing [Not Recovered/Not Resolved]
  - Nausea [Unknown]
